FAERS Safety Report 19714288 (Version 1)
Quarter: 2021Q3

REPORT INFORMATION
  Report Type: Spontaneous
  Country: US (occurrence: US)
  Receive Date: 20210817
  Receipt Date: 20210817
  Transmission Date: 20211014
  Serious: No
  Sender: FDA-Public Use
  Company Number: None

PATIENT
  Age: 69 Year
  Sex: Male

DRUGS (1)
  1. POMALYST [Suspect]
     Active Substance: POMALIDOMIDE
     Indication: PLASMA CELL MYELOMA
     Route: 048
     Dates: start: 20201214

REACTIONS (5)
  - Mean cell haemoglobin decreased [None]
  - Lymphocyte count decreased [None]
  - Blood creatine decreased [None]
  - Laboratory test abnormal [None]
  - Monocyte count decreased [None]

NARRATIVE: CASE EVENT DATE: 20210816
